FAERS Safety Report 9008503 (Version 1)
Quarter: 2013Q1

REPORT INFORMATION
  Report Type: Spontaneous
  Country: US (occurrence: US)
  Receive Date: 20130111
  Receipt Date: 20130111
  Transmission Date: 20140127
  Serious: Yes (Other)
  Sender: FDA-Public Use
  Company Number: US-PERRIGO-13US000003

PATIENT
  Age: 57 Year
  Sex: Female

DRUGS (4)
  1. CETIRIZINE [Suspect]
     Indication: URTICARIA CHRONIC
     Dosage: 10 MG, QD
     Route: 065
  2. CORTICOSTEROIDS [Concomitant]
     Indication: URTICARIA CHRONIC
     Dosage: UNK, UNK
     Route: 048
  3. FEXOFENADINE [Concomitant]
     Indication: URTICARIA CHRONIC
     Dosage: 180 MG, QD
     Route: 048
  4. RANITIDINE [Concomitant]
     Indication: URTICARIA CHRONIC
     Dosage: 300 MG, QD
     Route: 048

REACTIONS (7)
  - Hepatotoxicity [Recovered/Resolved]
  - Fatigue [Recovered/Resolved]
  - Abdominal pain [Recovered/Resolved]
  - Headache [Recovered/Resolved]
  - Diarrhoea [Recovered/Resolved]
  - Chromaturia [Recovered/Resolved]
  - Off label use [Unknown]
